FAERS Safety Report 8894622 (Version 1)
Quarter: 2012Q4

REPORT INFORMATION
  Report Type: Report from Study
  Country: US (occurrence: US)
  Receive Date: 20121108
  Receipt Date: 20121108
  Transmission Date: 20130627
  Serious: Yes (Hospitalization, Other)
  Sender: FDA-Public Use
  Company Number: US-ASTELLAS-2012US010801

PATIENT
  Age: 76 None
  Sex: Female
  Weight: 43 kg

DRUGS (8)
  1. ERLOTINIB TABLET [Suspect]
     Indication: NON-SMALL CELL LUNG CANCER
     Dosage: 100 mg, UID/QD
     Route: 048
     Dates: start: 20120806, end: 201209
  2. ERLOTINIB TABLET [Suspect]
     Dosage: 50 mg, UID/QD
     Route: 048
     Dates: start: 201209, end: 201209
  3. ERLOTINIB TABLET [Suspect]
     Dosage: 50 mg, UID/QD
     Route: 048
     Dates: start: 201209
  4. PROMETHAZINE [Concomitant]
     Indication: PRODUCT USED FOR UNKNOWN INDICATION
     Dosage: 12.5 mg, prn
     Route: 048
  5. SYNTHROID [Concomitant]
     Indication: HYPOTHYROIDISM
     Dosage: 50 mg, UID/QD
     Route: 048
  6. VERAPAMIL [Concomitant]
     Indication: HYPERTENSION
     Dosage: 180 mg, UID/QD
     Route: 048
  7. OXYCODONE [Concomitant]
     Indication: PAIN
     Dosage: 5 mg, prn
     Route: 048
  8. LISINOPRIL [Concomitant]
     Indication: PRODUCT USED FOR UNKNOWN INDICATION
     Dosage: 5 mg, UID/QD
     Route: 048

REACTIONS (10)
  - Incorrect dose administered [Unknown]
  - Papilloedema [Unknown]
  - Diarrhoea [Recovering/Resolving]
  - Asthenia [Not Recovered/Not Resolved]
  - Abasia [Unknown]
  - Rash [Recovering/Resolving]
  - Abdominal discomfort [Not Recovered/Not Resolved]
  - Vomiting [Not Recovered/Not Resolved]
  - Decreased appetite [Recovered/Resolved]
  - Weight decreased [Unknown]
